FAERS Safety Report 17080562 (Version 1)
Quarter: 2019Q4

REPORT INFORMATION
  Report Type: Spontaneous
  Country: US (occurrence: US)
  Receive Date: 20191127
  Receipt Date: 20191127
  Transmission Date: 20200122
  Serious: Yes (Other)
  Sender: FDA-Public Use
  Company Number: US-HIKMA PHARMACEUTICALS USA INC.-US-H14001-19-05899

PATIENT
  Age: 70 Year
  Sex: Female

DRUGS (2)
  1. DURAMORPH [Suspect]
     Active Substance: MORPHINE SULFATE
     Dosage: INFUSION BOLUS
     Route: 037
  2. DURAMORPH [Suspect]
     Active Substance: MORPHINE SULFATE
     Indication: SPINAL PAIN
     Dosage: SIMPLE CONTINUOUS INFUSION
     Route: 037

REACTIONS (1)
  - Catheter site granuloma [Recovered/Resolved]

NARRATIVE: CASE EVENT DATE: 20171020
